FAERS Safety Report 18386974 (Version 1)
Quarter: 2020Q4

REPORT INFORMATION
  Report Type: Spontaneous
  Country: US (occurrence: US)
  Receive Date: 20201015
  Receipt Date: 20201015
  Transmission Date: 20210114
  Serious: Yes (Hospitalization, Other)
  Sender: FDA-Public Use
  Company Number: None

PATIENT
  Age: 8 Year
  Sex: Male

DRUGS (1)
  1. NAYZILAM [Suspect]
     Active Substance: MIDAZOLAM
     Indication: EPILEPSY
     Dates: start: 20160101

REACTIONS (3)
  - Drug dose omission by device [None]
  - Epilepsy [None]
  - Drug delivery system malfunction [None]

NARRATIVE: CASE EVENT DATE: 20201010
